FAERS Safety Report 24856880 (Version 1)
Quarter: 2025Q1

REPORT INFORMATION
  Report Type: Spontaneous
  Country: US (occurrence: US)
  Receive Date: 20250117
  Receipt Date: 20250117
  Transmission Date: 20250409
  Serious: No
  Sender: MERCK
  Company Number: US-009507513-2412USA007589

PATIENT
  Age: 22 Year
  Sex: Male

DRUGS (3)
  1. TEMODAR [Suspect]
     Active Substance: TEMOZOLOMIDE
     Indication: Brain stem glioma
     Route: 048
  2. LOMUSTINE [Concomitant]
     Active Substance: LOMUSTINE
     Indication: Brain stem glioma
  3. BEVACIZUMAB [Concomitant]
     Active Substance: BEVACIZUMAB
     Indication: Brain stem glioma

REACTIONS (1)
  - Product use in unapproved indication [Unknown]
